FAERS Safety Report 25804354 (Version 3)
Quarter: 2025Q4

REPORT INFORMATION
  Report Type: Spontaneous
  Country: JP (occurrence: JP)
  Receive Date: 20250915
  Receipt Date: 20251126
  Transmission Date: 20260117
  Serious: Yes (Other)
  Sender: PFIZER
  Company Number: JP-GENMAB-2025-02704

PATIENT
  Age: 55 Year
  Sex: Female

DRUGS (1)
  1. TIVDAK [Suspect]
     Active Substance: TISOTUMAB VEDOTIN-TFTV
     Indication: Cervix carcinoma recurrent
     Dosage: 130 MILLIGRAM, 1Q3W
     Route: 042
     Dates: start: 20250819

REACTIONS (4)
  - Malignant neoplasm progression [Unknown]
  - Renal impairment [Unknown]
  - Proteinuria [Recovering/Resolving]
  - Malaise [Not Recovered/Not Resolved]

NARRATIVE: CASE EVENT DATE: 20250101
